FAERS Safety Report 22053086 (Version 1)
Quarter: 2023Q1

REPORT INFORMATION
  Report Type: Spontaneous
  Country: GB (occurrence: GB)
  Receive Date: 20230302
  Receipt Date: 20230302
  Transmission Date: 20230417
  Serious: Yes (Hospitalization)
  Sender: FDA-Public Use
  Company Number: GB-MYLANLABS-2023M1021681

PATIENT
  Age: 3 Decade
  Sex: Male

DRUGS (7)
  1. CIPROFLOXACIN [Suspect]
     Active Substance: CIPROFLOXACIN
     Indication: Neisseria infection
     Dosage: 750 MILLIGRAM, BID
     Route: 048
  2. CIPROFLOXACIN [Suspect]
     Active Substance: CIPROFLOXACIN
     Indication: Endocarditis bacterial
  3. CEFTRIAXONE [Suspect]
     Active Substance: CEFTRIAXONE
     Indication: Encephalitis
     Dosage: 2 GRAM, BID; ADMINISTERED VIA A PERIPHERALLY INSERTED CENTRAL CATHETER
     Route: 042
  4. CEFTRIAXONE [Suspect]
     Active Substance: CEFTRIAXONE
     Indication: Neisseria infection
  5. CEFTRIAXONE [Suspect]
     Active Substance: CEFTRIAXONE
     Indication: Endocarditis bacterial
  6. GENTAMICIN [Suspect]
     Active Substance: GENTAMICIN
     Indication: Neisseria infection
     Dosage: 5 MILLIGRAM/KILOGRAM, QD; ADMINISTERED VIA A PERIPHERALLY INSERTED CENTRAL CATHETER
     Route: 042
  7. GENTAMICIN [Suspect]
     Active Substance: GENTAMICIN
     Indication: Endocarditis bacterial

REACTIONS (2)
  - Pathogen resistance [Unknown]
  - Off label use [Unknown]
